FAERS Safety Report 10025032 (Version 1)
Quarter: 2014Q1

REPORT INFORMATION
  Report Type: Spontaneous
  Country: US (occurrence: US)
  Receive Date: 20140320
  Receipt Date: 20140320
  Transmission Date: 20141002
  Serious: No
  Sender: FDA-Public Use
  Company Number: US-009507513-1403USA009089

PATIENT
  Age: 16 Year
  Sex: Female

DRUGS (1)
  1. ASMANEX TWISTHALER [Suspect]

REACTIONS (1)
  - Malaise [Unknown]
